FAERS Safety Report 17398096 (Version 4)
Quarter: 2022Q1

REPORT INFORMATION
  Report Type: Spontaneous
  Country: JP (occurrence: JP)
  Receive Date: 20200210
  Receipt Date: 20220207
  Transmission Date: 20220424
  Serious: Yes (Death, Hospitalization)
  Sender: FDA-Public Use
  Company Number: JP-BAYER-2020-022465

PATIENT
  Age: 81 Year
  Sex: Male
  Weight: 72 kg

DRUGS (6)
  1. STIVARGA [Suspect]
     Active Substance: REGORAFENIB
     Indication: Hepatocellular carcinoma
     Dosage: DAILY DOSE 160 MG
     Route: 048
     Dates: start: 20200123, end: 20200202
  2. NEXAVAR [Suspect]
     Active Substance: SORAFENIB
     Indication: Hepatocellular carcinoma
     Dosage: DAILY DOSE 800 MG
     Route: 048
     Dates: start: 20191128, end: 20200122
  3. LENVIMA [Suspect]
     Active Substance: LENVATINIB
     Indication: Hepatocellular carcinoma
     Dosage: DAILY DOSE 8 MG
     Route: 048
     Dates: start: 20191015, end: 20191127
  4. UNISIA [Concomitant]
     Active Substance: AMLODIPINE BESYLATE\CANDESARTAN CILEXETIL
     Indication: Hypertension
     Dosage: DAILY DOSE CANDESARTAN 8 MG, AMLODIPINE 2.5 MG
     Route: 048
     Dates: start: 20190513, end: 20200202
  5. TENELIGLIPTIN [Concomitant]
     Active Substance: TENELIGLIPTIN
     Indication: Diabetes mellitus
     Dosage: DAILY DOSE 40 MG
     Route: 048
     Dates: start: 20160822, end: 20200202
  6. AMARYL [Concomitant]
     Active Substance: GLIMEPIRIDE
     Indication: Diabetes mellitus
     Dosage: DAILY DOSE 0.25 MG
     Route: 048
     Dates: start: 20070210, end: 20200202

REACTIONS (13)
  - Interstitial lung disease [Fatal]
  - Acute respiratory failure [Fatal]
  - Chest discomfort [Fatal]
  - Dyspnoea [Fatal]
  - Oxygen saturation decreased [Fatal]
  - Cough [Fatal]
  - White blood cell count increased [Fatal]
  - C-reactive protein increased [Fatal]
  - Lung opacity [Fatal]
  - Pyrexia [Fatal]
  - Urine output decreased [Fatal]
  - Blood pressure decreased [Fatal]
  - Heart rate decreased [Fatal]

NARRATIVE: CASE EVENT DATE: 20200203
